FAERS Safety Report 5749427-6 (Version None)
Quarter: 2008Q2

REPORT INFORMATION
  Report Type: 
  Country: None (occurrence: None)
  Receive Date: 20080527
  Receipt Date: 20080512
  Transmission Date: 20081010
  Serious: Yes (Life-Threatening)
  Sender: FDA-Public Use
  Company Number: ZA-ROCHE-563815

PATIENT
  Sex: Female

DRUGS (11)
  1. XELODA [Suspect]
     Dosage: STRENGTH REPORTED AS 500 MG AND 150 MG
     Route: 065
  2. FLUANXOL [Concomitant]
     Indication: DEPRESSION
  3. ELTROXIN [Concomitant]
     Dosage: 60 TABLETS WERE DISPENSED ON 4 MAY 2008.
  4. TREPILINE [Concomitant]
     Dosage: 30 TABLETS WERE DISPENSED ON 4 MAY 2008
  5. RISPERDAL [Concomitant]
     Indication: SCHIZOPHRENIA
     Dosage: DRUG REPORED AS: RISPERDAL QUICKLETS 30 DOSE FORMS DISPENSED ON 4 MAY 2008.
  6. NUZAK [Concomitant]
     Indication: DEPRESSION
     Dosage: 90 CAPS DISPENSED.
  7. B-CAL-D [Concomitant]
     Dosage: 60 TABLETS DISPENSED.
  8. B-CAL-D [Concomitant]
     Dosage: 60 TABLETS DISPENSED.
  9. B-CAL-D [Concomitant]
     Dosage: 60 TABLETS DISPENSED.
  10. AKINETON [Concomitant]
     Dosage: 100 DISPENSED.
  11. BETANOID [Concomitant]

REACTIONS (1)
  - EMBOLISM [None]
